FAERS Safety Report 19236541 (Version 1)
Quarter: 2021Q2

REPORT INFORMATION
  Report Type: Spontaneous
  Country: US (occurrence: US)
  Receive Date: 20210510
  Receipt Date: 20210510
  Transmission Date: 20210717
  Serious: Yes (Hospitalization)
  Sender: FDA-Public Use
  Company Number: US-JNJFOC-20210501529

PATIENT
  Age: 14 Year
  Sex: Female

DRUGS (1)
  1. DIPHENHYDRAMINE HYDROCHLORIDE. [Suspect]
     Active Substance: DIPHENHYDRAMINE HYDROCHLORIDE
     Indication: PRODUCT USED FOR UNKNOWN INDICATION
     Dosage: INGESTION OF 100 DIPHENHYDRAMINE?TABLETS.
     Route: 048

REACTIONS (2)
  - Overdose [Unknown]
  - Anticholinergic syndrome [Recovered/Resolved]
